FAERS Safety Report 11172070 (Version 4)
Quarter: 2015Q4

REPORT INFORMATION
  Report Type: Spontaneous
  Country: US (occurrence: US)
  Receive Date: 20150608
  Receipt Date: 20151124
  Transmission Date: 20160304
  Serious: Yes (Hospitalization)
  Sender: FDA-Public Use
  Company Number: US-GLAXOSMITHKLINE-US2015077308

PATIENT
  Age: 90 Year
  Sex: Female

DRUGS (4)
  1. GABAPENTIN. [Concomitant]
     Active Substance: GABAPENTIN
  2. LOSARTAN. [Concomitant]
     Active Substance: LOSARTAN
  3. REQUIP [Suspect]
     Active Substance: ROPINIROLE HYDROCHLORIDE
     Indication: RESTLESS LEGS SYNDROME
     Dosage: 6 MG, QD
     Route: 048
     Dates: start: 2011
  4. ASPIRIN (BABY) [Concomitant]
     Active Substance: ASPIRIN

REACTIONS (10)
  - Pain in extremity [Not Recovered/Not Resolved]
  - Restless legs syndrome [Not Recovered/Not Resolved]
  - Drug intolerance [Unknown]
  - Fall [Unknown]
  - Surgery [Unknown]
  - Hypertension [Not Recovered/Not Resolved]
  - Road traffic accident [Recovering/Resolving]
  - Drug ineffective [Not Recovered/Not Resolved]
  - Emotional distress [Unknown]
  - Visual acuity reduced [Not Recovered/Not Resolved]

NARRATIVE: CASE EVENT DATE: 201503
